FAERS Safety Report 23089184 (Version 1)
Quarter: 2023Q4

REPORT INFORMATION
  Report Type: Spontaneous
  Country: US (occurrence: US)
  Receive Date: 20231020
  Receipt Date: 20231020
  Transmission Date: 20240109
  Serious: Yes (Hospitalization)
  Sender: FDA-Public Use
  Company Number: US-PPDUS-2023ST003776

PATIENT
  Age: 67 Year
  Sex: Female

DRUGS (2)
  1. ORSERDU [Suspect]
     Active Substance: ELACESTRANT
     Indication: Product used for unknown indication
     Dosage: 86 MG THREE TABS DAILY
     Route: 048
     Dates: start: 20230817
  2. ORSERDU [Suspect]
     Active Substance: ELACESTRANT
     Route: 048

REACTIONS (2)
  - Pain in extremity [Unknown]
  - Vomiting [Unknown]
